FAERS Safety Report 11734421 (Version 9)
Quarter: 2018Q1

REPORT INFORMATION
  Report Type: Spontaneous
  Country: US (occurrence: US)
  Receive Date: 20151113
  Receipt Date: 20180221
  Transmission Date: 20180508
  Serious: Yes (Congenital Anomaly, Other)
  Sender: FDA-Public Use
  Company Number: PHEH2015US023511

PATIENT
  Sex: Male

DRUGS (4)
  1. ONDANSETRON DR REDDY [Suspect]
     Active Substance: ONDANSETRON
     Indication: FOETAL EXPOSURE DURING PREGNANCY
     Dosage: MOTHER DOSE: 8 MG, BID AND 8 MG 1 TO 2 TIMES DAILY
     Route: 064
  2. ZOFRAN [Suspect]
     Active Substance: ONDANSETRON HYDROCHLORIDE
     Indication: FOETAL EXPOSURE DURING PREGNANCY
     Route: 064
  3. ONDANSETRON HYDROCHLORIDE. [Suspect]
     Active Substance: ONDANSETRON HYDROCHLORIDE
     Indication: FOETAL EXPOSURE DURING PREGNANCY
     Route: 064
  4. ONDANSETRON AUROBINDO [Suspect]
     Active Substance: ONDANSETRON HYDROCHLORIDE
     Indication: FOETAL EXPOSURE DURING PREGNANCY
     Dosage: MOTHER DOSE: 04 MG, BID
     Route: 064

REACTIONS (32)
  - Injury [Unknown]
  - Pain [Unknown]
  - Skin exfoliation [Unknown]
  - Pharyngitis streptococcal [Unknown]
  - Decreased appetite [Unknown]
  - Otitis media chronic [Unknown]
  - Respiratory tract congestion [Unknown]
  - Hand-foot-and-mouth disease [Unknown]
  - Viral infection [Unknown]
  - Seborrhoea [Unknown]
  - Skin disorder [Unknown]
  - Congenital anomaly [Unknown]
  - Developmental delay [Unknown]
  - Diarrhoea [Unknown]
  - Jaundice neonatal [Unknown]
  - Upper respiratory tract infection [Unknown]
  - Skin abrasion [Unknown]
  - Cleft palate [Unknown]
  - Emotional distress [Unknown]
  - Anhedonia [Unknown]
  - Ear disorder [Unknown]
  - Cough [Unknown]
  - Acarodermatitis [Unknown]
  - Selective eating disorder [Unknown]
  - Rhinorrhoea [Unknown]
  - Anxiety [Unknown]
  - Abdominal pain [Unknown]
  - Irritability [Unknown]
  - Vomiting [Unknown]
  - Foetal exposure during pregnancy [Unknown]
  - Nasal congestion [Unknown]
  - Pyrexia [Unknown]
